FAERS Safety Report 17519376 (Version 1)
Quarter: 2020Q1

REPORT INFORMATION
  Report Type: Spontaneous
  Country: US (occurrence: US)
  Receive Date: 20200310
  Receipt Date: 20200310
  Transmission Date: 20200409
  Serious: No
  Sender: FDA-Public Use
  Company Number: US-ALLERGAN-1941212US

PATIENT
  Age: 61 Year
  Sex: Female

DRUGS (1)
  1. ESTRACE [Suspect]
     Active Substance: ESTRADIOL
     Indication: ATROPHIC VULVOVAGINITIS
     Dosage: 1 G, Q WEEK
     Route: 067
     Dates: start: 20190819, end: 201909

REACTIONS (2)
  - Headache [Recovered/Resolved]
  - Breast mass [Unknown]

NARRATIVE: CASE EVENT DATE: 201908
